FAERS Safety Report 6933710-2 (Version None)
Quarter: 2010Q3

REPORT INFORMATION
  Report Type: 
  Country: None (occurrence: None)
  Receive Date: 20100820
  Receipt Date: 20100806
  Transmission Date: 20110219
  Serious: Yes (Hospitalization, Disabling, Other)
  Sender: FDA-Public Use
  Company Number: US-ELI_LILLY_AND_COMPANY-US201005003305

PATIENT
  Age: 58 Year
  Sex: Male

DRUGS (2)
  1. EFFIENT [Suspect]
     Indication: ACUTE MYOCARDIAL INFARCTION
     Dosage: 10 MG, UNKNOWN
     Dates: start: 20100415, end: 20100515
  2. ASPIRIN [Concomitant]
     Dosage: 81 MG, UNKNOWN

REACTIONS (2)
  - CEREBRAL ARTERY STENOSIS [None]
  - ISCHAEMIC STROKE [None]
